FAERS Safety Report 10155325 (Version 1)
Quarter: 2014Q2

REPORT INFORMATION
  Report Type: Spontaneous
  Country: GR (occurrence: GR)
  Receive Date: 20140506
  Receipt Date: 20140506
  Transmission Date: 20141212
  Serious: No
  Sender: FDA-Public Use
  Company Number: PHHY2014GR052996

PATIENT
  Age: 60 Year
  Sex: Male

DRUGS (2)
  1. TASIGNA [Suspect]
     Dosage: UNK UKN, UNK
  2. TASIGNA [Suspect]
     Dosage: UNK UKN, UNK (DOSE REDUCED TO HALF)

REACTIONS (2)
  - Drug administration error [Unknown]
  - Thrombocytopenia [Unknown]
